FAERS Safety Report 24191705 (Version 1)
Quarter: 2024Q3

REPORT INFORMATION
  Report Type: Report from Study
  Country: US (occurrence: US)
  Receive Date: 20240808
  Receipt Date: 20240808
  Transmission Date: 20241017
  Serious: Yes (Other)
  Sender: ABBVIE
  Company Number: US-ABBVIE-5827633

PATIENT
  Age: 64 Year
  Sex: Male

DRUGS (1)
  1. CREON [Suspect]
     Active Substance: PANCRELIPASE AMYLASE\PANCRELIPASE LIPASE\PANCRELIPASE PROTEASE
     Indication: Dyspepsia
     Dosage: HE TAKES 2 PILLS WITH EACH MEAL EACH DINNER AND ONE WITH A?SNACK. SOMETIMES HE HAS SNACKS ONCE OR...
     Route: 048
     Dates: start: 202304

REACTIONS (15)
  - Macular degeneration [Not Recovered/Not Resolved]
  - Intentional product misuse [Unknown]
  - Pharyngeal haemorrhage [Unknown]
  - Dyspepsia [Unknown]
  - Eye pain [Not Recovered/Not Resolved]
  - Visual impairment [Not Recovered/Not Resolved]
  - Unevaluable event [Not Recovered/Not Resolved]
  - Dehydration [Not Recovered/Not Resolved]
  - Adverse food reaction [Not Recovered/Not Resolved]
  - Fatigue [Unknown]
  - Pyrexia [Unknown]
  - Immunodeficiency [Unknown]
  - Skin disorder [Not Recovered/Not Resolved]
  - Eye disorder [Not Recovered/Not Resolved]
  - Hypophagia [Not Recovered/Not Resolved]

NARRATIVE: CASE EVENT DATE: 20240501
